FAERS Safety Report 12696901 (Version 1)
Quarter: 2016Q3

REPORT INFORMATION
  Report Type: Spontaneous
  Country: US (occurrence: US)
  Receive Date: 20160830
  Receipt Date: 20160830
  Transmission Date: 20161109
  Serious: No
  Sender: FDA-Public Use
  Company Number: US-TEVA-636982USA

PATIENT
  Sex: Female
  Weight: 89.89 kg

DRUGS (2)
  1. LABETALOL [Suspect]
     Active Substance: LABETALOL\LABETALOL HYDROCHLORIDE
     Dosage: 100 MILLIGRAM DAILY;
     Route: 065
  2. LABETALOL [Suspect]
     Active Substance: LABETALOL\LABETALOL HYDROCHLORIDE
     Indication: ARRHYTHMIA
     Dosage: 100MG IN MORNING AND 50MG AT NIGHT
     Route: 065
     Dates: start: 2013

REACTIONS (1)
  - Hypotension [Unknown]
